FAERS Safety Report 6023907-0 (Version None)
Quarter: 2008Q4

REPORT INFORMATION
  Report Type: 
  Country: None (occurrence: None)
  Receive Date: 20081223
  Receipt Date: 20081216
  Transmission Date: 20090506
  Serious: Yes (Hospitalization)
  Sender: FDA-Public Use
  Company Number: DSA_32944_2008

PATIENT
  Sex: Female

DRUGS (3)
  1. TAVOR /00273201/ (TAVOR) (NOT SPECIFIED) [Suspect]
     Dosage: 25 MG 1X, NOT THE PRESCRIBED AMOUNT ORAL)
     Route: 048
     Dates: start: 20081216, end: 20081216
  2. DOMINAL /00018902/ (DOMINAL - PROTHIPENDYL HYDROCHLORIDE) (NOT SPECIFI [Suspect]
     Dosage: ORAL
     Route: 048
     Dates: start: 20081216, end: 20081216
  3. DOXEPIN HCL [Suspect]
     Dosage: ORAL
     Route: 048
     Dates: start: 20081216, end: 20081216

REACTIONS (4)
  - COMA [None]
  - GASTROINTESTINAL SOUNDS ABNORMAL [None]
  - MULTIPLE DRUG OVERDOSE INTENTIONAL [None]
  - SUICIDE ATTEMPT [None]
